FAERS Safety Report 23245249 (Version 1)
Quarter: 2023Q4

REPORT INFORMATION
  Report Type: Spontaneous
  Country: AU (occurrence: AU)
  Receive Date: 20231130
  Receipt Date: 20231130
  Transmission Date: 20240109
  Serious: Yes (Other)
  Sender: FDA-Public Use
  Company Number: AU-GILEAD-2023-0652620

PATIENT
  Sex: Female

DRUGS (38)
  1. ZYDELIG [Suspect]
     Active Substance: IDELALISIB
     Indication: Diffuse large B-cell lymphoma
     Dosage: UNK
     Route: 065
     Dates: start: 2014, end: 201603
  2. MABTHERA [Suspect]
     Active Substance: RITUXIMAB
     Indication: Diffuse large B-cell lymphoma
     Dosage: UNK
     Route: 065
     Dates: start: 2006, end: 2006
  3. MABTHERA [Suspect]
     Active Substance: RITUXIMAB
     Dosage: UNK
     Route: 065
     Dates: start: 202207, end: 20221005
  4. MABTHERA [Suspect]
     Active Substance: RITUXIMAB
     Dosage: UNK
     Route: 065
     Dates: start: 2014, end: 201603
  5. MABTHERA [Suspect]
     Active Substance: RITUXIMAB
     Dosage: UNK
     Route: 065
     Dates: end: 202211
  6. DURVALUMAB [Suspect]
     Active Substance: DURVALUMAB
     Indication: Diffuse large B-cell lymphoma
     Dosage: UNK
     Route: 065
     Dates: start: 202212, end: 20230202
  7. ACALABRUTINIB [Suspect]
     Active Substance: ACALABRUTINIB
     Indication: Diffuse large B-cell lymphoma
     Dosage: UNK
     Route: 065
     Dates: start: 202212, end: 20230202
  8. CYCLOPHOSPHAMIDE [Suspect]
     Active Substance: CYCLOPHOSPHAMIDE
     Indication: Diffuse large B-cell lymphoma
     Dosage: UNK
     Route: 065
     Dates: start: 202207, end: 20221005
  9. DOXORUBICIN HYDROCHLORIDE [Suspect]
     Active Substance: DOXORUBICIN HYDROCHLORIDE
     Indication: Diffuse large B-cell lymphoma
     Dosage: UNK
     Route: 065
     Dates: start: 202207, end: 20221005
  10. VINCRISTINE [Suspect]
     Active Substance: VINCRISTINE
     Indication: Diffuse large B-cell lymphoma
     Dosage: UNK
     Route: 065
     Dates: start: 202207, end: 20221005
  11. PREDNISONE [Suspect]
     Active Substance: PREDNISONE
     Indication: Diffuse large B-cell lymphoma
     Dosage: UNK
     Route: 065
     Dates: start: 202207, end: 20221005
  12. GEMCITABINE [Suspect]
     Active Substance: GEMCITABINE
     Indication: Diffuse large B-cell lymphoma
     Dosage: UNK
     Route: 065
     Dates: end: 202211
  13. OXALIPLATIN [Suspect]
     Active Substance: OXALIPLATIN
     Indication: Diffuse large B-cell lymphoma
     Dosage: UNK
     Route: 065
     Dates: end: 202211
  14. BACTRIM [Concomitant]
     Active Substance: SULFAMETHOXAZOLE\TRIMETHOPRIM
  15. VALACYCLOVIR HYDROCHLORIDE [Concomitant]
     Active Substance: VALACYCLOVIR HYDROCHLORIDE
  16. ATENOLOL [Concomitant]
     Active Substance: ATENOLOL
  17. HYDROCHLOROTHIAZIDE [Concomitant]
     Active Substance: HYDROCHLOROTHIAZIDE
  18. CALCIUM PANTOTHENATE [Concomitant]
     Active Substance: CALCIUM PANTOTHENATE
  19. CARBOHYDRATES [Concomitant]
     Active Substance: CARBOHYDRATES
  20. CYANOCOBALAMIN [Concomitant]
     Active Substance: CYANOCOBALAMIN
  21. SOYBEAN OIL [Concomitant]
     Active Substance: SOYBEAN OIL
  22. FERROUS SULFATE [Concomitant]
     Active Substance: FERROUS SULFATE
  23. FOLIC ACID [Concomitant]
     Active Substance: FOLIC ACID
  24. NICOTINAMIDE [Concomitant]
     Active Substance: NIACINAMIDE
  25. PHOSPHORUS [Concomitant]
     Active Substance: PHOSPHORUS
  26. POTASSIUM [Concomitant]
     Active Substance: POTASSIUM
  27. PROTEIN [Concomitant]
     Active Substance: PROTEIN
  28. PYRIDOXINE HYDROCHLORIDE [Concomitant]
     Active Substance: PYRIDOXINE HYDROCHLORIDE
  29. VITAMIN A ACETATE [Concomitant]
     Active Substance: VITAMIN A ACETATE
  30. RIBOFLAVIN [Concomitant]
     Active Substance: RIBOFLAVIN
  31. SODIUM ASCORBATE [Concomitant]
     Active Substance: SODIUM ASCORBATE
  32. THIAMINE HYDROCHLORIDE [Concomitant]
     Active Substance: THIAMINE HYDROCHLORIDE
  33. .ALPHA.-TOCOPHEROL ACETATE [Concomitant]
     Active Substance: .ALPHA.-TOCOPHEROL ACETATE
  34. SUSTAGEN [Concomitant]
  35. PREDNISOLONE [Concomitant]
     Active Substance: PREDNISOLONE
  36. PANTOPRAZOLE [Concomitant]
     Active Substance: PANTOPRAZOLE
  37. ALLOPURINOL [Concomitant]
     Active Substance: ALLOPURINOL
  38. TRAMADOL [Concomitant]
     Active Substance: TRAMADOL\TRAMADOL HYDROCHLORIDE

REACTIONS (7)
  - Diffuse large B-cell lymphoma [Unknown]
  - Disease progression [Unknown]
  - Neuropathy peripheral [Unknown]
  - Thyroid mass [Unknown]
  - Hypercholesterolaemia [Unknown]
  - Leukocytosis [Unknown]
  - Lymphocytosis [Unknown]
